FAERS Safety Report 11233883 (Version 2)
Quarter: 2015Q3

REPORT INFORMATION
  Report Type: Report from Study
  Country: US (occurrence: US)
  Receive Date: 20150702
  Receipt Date: 20150710
  Transmission Date: 20151125
  Serious: Yes (Other)
  Sender: FDA-Public Use
  Company Number: US-ABBVIE-15P-163-1417656-00

PATIENT
  Age: 40 Year
  Sex: Male

DRUGS (2)
  1. HUMIRA [Suspect]
     Active Substance: ADALIMUMAB
     Indication: COLITIS ULCERATIVE
     Route: 065
     Dates: start: 20150620, end: 20150620
  2. HUMIRA [Suspect]
     Active Substance: ADALIMUMAB
     Route: 065
     Dates: start: 20150704

REACTIONS (13)
  - Stress [Unknown]
  - Depression [Unknown]
  - Violence-related symptom [Unknown]
  - Agitation [Unknown]
  - Anxiety [Unknown]
  - Poor quality sleep [Unknown]
  - Anger [Unknown]
  - Suicidal ideation [Unknown]
  - Fatigue [Unknown]
  - Pain [Unknown]
  - Restlessness [Unknown]
  - Muscle strain [Unknown]
  - Insomnia [Unknown]

NARRATIVE: CASE EVENT DATE: 20150620
